FAERS Safety Report 22091681 (Version 1)
Quarter: 2023Q1

REPORT INFORMATION
  Report Type: Spontaneous
  Country: DE (occurrence: DE)
  Receive Date: 20230314
  Receipt Date: 20230314
  Transmission Date: 20230418
  Serious: No
  Sender: FDA-Public Use
  Company Number: DE-ALKEM LABORATORIES LIMITED-DE-ALKEM-2022-15090

PATIENT
  Age: 67 Year
  Sex: Female

DRUGS (3)
  1. ASPIRIN [Suspect]
     Active Substance: ASPIRIN
     Indication: Migraine
     Dosage: UNK
     Route: 065
  2. METOPROLOL SUCCINATE [Suspect]
     Active Substance: METOPROLOL SUCCINATE
     Indication: Migraine
     Dosage: UNK
     Route: 065
  3. HERBALS [Suspect]
     Active Substance: HERBALS
     Indication: Migraine
     Dosage: 75 MILLIGRAM, QD (DAILY)
     Route: 065

REACTIONS (1)
  - Transaminases abnormal [Unknown]
